FAERS Safety Report 23139522 (Version 1)
Quarter: 2023Q4

REPORT INFORMATION
  Report Type: Spontaneous
  Country: US (occurrence: US)
  Receive Date: 20231102
  Receipt Date: 20231102
  Transmission Date: 20240109
  Serious: Yes (Other)
  Sender: FDA-Public Use
  Company Number: US-PERRIGO-23US012594

PATIENT
  Age: 46 Year
  Sex: Female
  Weight: 104.31 kg

DRUGS (1)
  1. NICOTINE POLACRILEX [Suspect]
     Active Substance: NICOTINE
     Indication: Smoking cessation therapy
     Dosage: 4 MG, SINGLE
     Route: 002
     Dates: start: 20230917, end: 20230917

REACTIONS (4)
  - Anaphylactic shock [Recovered/Resolved]
  - Dyspnoea [Recovered/Resolved]
  - Dysphonia [Recovered/Resolved]
  - Sinus pain [Recovered/Resolved]

NARRATIVE: CASE EVENT DATE: 20230917
